FAERS Safety Report 12921022 (Version 1)
Quarter: 2016Q4

REPORT INFORMATION
  Report Type: Spontaneous
  Country: US (occurrence: US)
  Receive Date: 20161107
  Receipt Date: 20161107
  Transmission Date: 20170207
  Serious: Yes (Hospitalization)
  Sender: FDA-Public Use
  Company Number: US-SMITH AND NEPHEW, INC-2016SMT00953

PATIENT
  Sex: Male
  Weight: 113.38 kg

DRUGS (7)
  1. FISH OIL [Concomitant]
     Active Substance: FISH OIL
  2. DOXAZOSIN [Concomitant]
     Active Substance: DOXAZOSIN\DOXAZOSIN MESYLATE
  3. BACLOFEN. [Concomitant]
     Active Substance: BACLOFEN
  4. MAGNESIUM [Concomitant]
     Active Substance: MAGNESIUM
  5. CRANBERRY PILL [Concomitant]
     Active Substance: CRANBERRY
  6. COLLAGENASE SANTYL [Suspect]
     Active Substance: COLLAGENASE CLOSTRIDIUM HISTOLYTICUM
     Indication: DECUBITUS ULCER
     Dosage: UNK, 2X/DAY
     Route: 061
     Dates: start: 2016
  7. VITAMIN C [Concomitant]
     Active Substance: ASCORBIC ACID

REACTIONS (2)
  - Wound complication [Not Recovered/Not Resolved]
  - Culture positive [Unknown]

NARRATIVE: CASE EVENT DATE: 2016
